FAERS Safety Report 4554588-0 (Version None)
Quarter: 2005Q1

REPORT INFORMATION
  Report Type: 
  Country: None (occurrence: None)
  Receive Date: 20050118
  Receipt Date: 20041029
  Transmission Date: 20050727
  Serious: Yes (Death, Other)
  Sender: FDA-Public Use
  Company Number: PHFR2004GB04054

PATIENT
  Age: 72 Year
  Sex: Male

DRUGS (8)
  1. AMOXICILLIN [Concomitant]
     Dosage: 750MG/DAY
     Route: 048
     Dates: start: 20040920, end: 20040923
  2. METOCLOPRAMIDE [Concomitant]
     Indication: NAUSEA
     Dosage: UNK, UNK
     Route: 048
     Dates: start: 20040907
  3. SUSTAC [Concomitant]
     Dosage: 6.2 MG, TID
     Route: 048
  4. ALLOPURINOL [Concomitant]
     Dosage: UNK, UNK
     Route: 048
     Dates: start: 20040811
  5. GAVISCON [Concomitant]
     Route: 048
  6. ATENOLOL [Concomitant]
     Route: 048
  7. ASPIRIN [Concomitant]
     Dosage: 75MG/DAY
     Route: 048
  8. GLEEVEC [Suspect]
     Indication: CHRONIC MYELOID LEUKAEMIA
     Dosage: UNK, UNK
     Route: 048
     Dates: start: 20040811, end: 20040901

REACTIONS (7)
  - ACUTE RESPIRATORY DISTRESS SYNDROME [None]
  - ALANINE AMINOTRANSFERASE INCREASED [None]
  - C-REACTIVE PROTEIN INCREASED [None]
  - DIFFUSE ALVEOLAR DAMAGE [None]
  - DYSPNOEA [None]
  - HYPOXIA [None]
  - PRODUCTIVE COUGH [None]
